FAERS Safety Report 14113349 (Version 1)
Quarter: 2017Q4

REPORT INFORMATION
  Report Type: Spontaneous
  Country: US (occurrence: US)
  Receive Date: 20171021
  Receipt Date: 20171021
  Transmission Date: 20180321
  Serious: No
  Sender: FDA-Public Use
  Company Number: None

PATIENT
  Sex: Male
  Weight: 91.8 kg

DRUGS (4)
  1. TURMERIC [Concomitant]
     Active Substance: HERBALS\TURMERIC
  2. ZOMETA [Suspect]
     Active Substance: ZOLEDRONIC ACID
     Indication: BONE PAIN
     Route: 042
     Dates: start: 20171018
  3. PERCOCET [Concomitant]
     Active Substance: ACETAMINOPHEN\OXYCODONE HYDROCHLORIDE
  4. CHEMO [Concomitant]
     Active Substance: UNSPECIFIED INGREDIENT

REACTIONS (4)
  - Condition aggravated [None]
  - Bone pain [None]
  - Weight increased [None]
  - Chills [None]

NARRATIVE: CASE EVENT DATE: 20171019
